FAERS Safety Report 14437166 (Version 1)
Quarter: 2018Q1

REPORT INFORMATION
  Report Type: Spontaneous
  Country: US (occurrence: US)
  Receive Date: 20180125
  Receipt Date: 20180125
  Transmission Date: 20180509
  Serious: Yes (Disabling)
  Sender: FDA-Public Use
  Company Number: None

PATIENT
  Sex: Female

DRUGS (1)
  1. ACLOMETASONE DIPRIPIONATE [Suspect]
     Active Substance: ALCLOMETASONE DIPROPIONATE
     Indication: ECZEMA
     Dates: end: 20180111

REACTIONS (8)
  - Eating disorder [None]
  - Eczema [None]
  - Swelling face [None]
  - Burning sensation [None]
  - Middle insomnia [None]
  - Chapped lips [None]
  - Rash [None]
  - Secretion discharge [None]

NARRATIVE: CASE EVENT DATE: 20180111
